FAERS Safety Report 9384377 (Version 1)
Quarter: 2013Q3

REPORT INFORMATION
  Report Type: Report from Study
  Country: IN (occurrence: IN)
  Receive Date: 20130705
  Receipt Date: 20130705
  Transmission Date: 20140515
  Serious: Yes (Death)
  Sender: FDA-Public Use
  Company Number: PHHY2012IN005364

PATIENT
  Age: 69 Year
  Sex: Male

DRUGS (2)
  1. GLIVEC [Suspect]
     Indication: CHRONIC MYELOID LEUKAEMIA
     Dosage: 400 MG, UNK
  2. GLIVEC [Suspect]
     Dosage: 400 MG, UNK

REACTIONS (3)
  - Cardiac arrest [Fatal]
  - Renal failure [Fatal]
  - Full blood count decreased [Unknown]
